FAERS Safety Report 6484809-9 (Version None)
Quarter: 2009Q4

REPORT INFORMATION
  Report Type: 
  Country: None (occurrence: None)
  Receive Date: 20091209
  Receipt Date: 20090622
  Transmission Date: 20100525
  Serious: No
  Sender: FDA-Public Use
  Company Number: A0793082A

PATIENT
  Age: 73 Year
  Sex: Female

DRUGS (4)
  1. AVANDAMET [Suspect]
     Dosage: 1TAB TWICE PER DAY
     Route: 048
     Dates: start: 20090519
  2. LISINOPRIL [Suspect]
     Dosage: 10MG PER DAY
     Route: 048
     Dates: start: 20090514
  3. SIMVASTATIN [Suspect]
     Indication: BLOOD CHOLESTEROL INCREASED
     Dosage: 40MG PER DAY
     Route: 048
     Dates: start: 20090314
  4. VITAMINS [Concomitant]

REACTIONS (2)
  - FATIGUE [None]
  - POLLAKIURIA [None]
